FAERS Safety Report 6165230-X (Version None)
Quarter: 2009Q2

REPORT INFORMATION
  Report Type: 
  Country: None (occurrence: None)
  Receive Date: 20090423
  Receipt Date: 20090415
  Transmission Date: 20091009
  Serious: Yes (Death)
  Sender: FDA-Public Use
  Company Number: CZ-PFIZER INC-2008078997

PATIENT

DRUGS (12)
  1. BLINDED *PLACEBO [Suspect]
     Indication: COLORECTAL CANCER
     Route: 048
     Dates: start: 20080403
  2. BLINDED SUNITINIB MALATE [Suspect]
     Indication: COLORECTAL CANCER
     Route: 048
     Dates: start: 20080403
  3. CAMPTOSAR [Suspect]
     Indication: COLORECTAL CANCER
     Dosage: 174 MG, EVERY 2 WEEKS
     Route: 042
     Dates: start: 20080403
  4. FLUOROURACIL [Suspect]
     Indication: COLORECTAL CANCER
     Dosage: 388 MG, EVERY 2 WEEKS
     Route: 040
     Dates: start: 20080403
  5. FLUOROURACIL [Suspect]
     Dosage: 2331 MG, EVERY 2 WEEKS
     Route: 041
     Dates: start: 20080403
  6. LEUCOVORIN CALCIUM [Suspect]
     Indication: COLORECTAL CANCER
     Dosage: 388 MG, EVERY 2 WEEKS
     Route: 042
     Dates: start: 20080403
  7. LOKREN [Concomitant]
     Indication: HYPERTENSION
     Dosage: 20 MG, 1XDAY
     Dates: start: 20020101
  8. ATORVASTATIN CALCIUM [Concomitant]
     Indication: HYPERCHOLESTEROLAEMIA
     Dosage: 20 MG, 1XDAY
     Dates: start: 20020101
  9. GLUCOPHAGE [Concomitant]
     Indication: DIABETES MELLITUS
     Dosage: 850 MG, 1XDAY
     Dates: start: 19980101
  10. AKTIFERRIN COMPOSITUM [Concomitant]
     Indication: MINERAL SUPPLEMENTATION
     Dates: start: 20080319
  11. MEGACE [Concomitant]
     Indication: ANOREXIA
     Dosage: 10 MG, 1XDAY
     Dates: start: 20080618
  12. POTASSIUM CHLORIDE [Concomitant]
     Indication: HYPOKALAEMIA
     Dosage: 500 MG, 1XDAY
     Dates: start: 20080430

REACTIONS (1)
  - DEATH [None]
